FAERS Safety Report 8798837 (Version 1)
Quarter: 2012Q4

REPORT INFORMATION
  Report Type: 
  Country: CO (occurrence: CO)
  Receive Date: 20120920
  Receipt Date: 20120920
  Transmission Date: 20130627
  Serious: Yes (Hospitalization)
  Sender: FDA-Public Use
  Company Number: CO-GLAXOSMITHKLINE-A0993921A

PATIENT
  Sex: Male

DRUGS (1)
  1. VOTRIENT [Suspect]
     Indication: RENAL CANCER METASTATIC
     Dosage: 800MG per day
     Route: 048
     Dates: start: 201204

REACTIONS (7)
  - Leukopenia [Recovering/Resolving]
  - Thrombocytopenia [Unknown]
  - Pyrexia [Unknown]
  - Diarrhoea [Unknown]
  - Syncope [Unknown]
  - Hypotension [Unknown]
  - Blood creatinine abnormal [Unknown]
